FAERS Safety Report 21975092 (Version 1)
Quarter: 2023Q1

REPORT INFORMATION
  Report Type: Spontaneous
  Country: CZ (occurrence: CZ)
  Receive Date: 20230209
  Receipt Date: 20230209
  Transmission Date: 20230417
  Serious: Yes (Other)
  Sender: FDA-Public Use
  Company Number: CZ-Accord-295765

PATIENT
  Age: 63 Year
  Sex: Female

DRUGS (1)
  1. QUETIAPINE [Suspect]
     Active Substance: QUETIAPINE
     Indication: Multimorbidity

REACTIONS (3)
  - Weight increased [Recovering/Resolving]
  - Hypertension [Recovered/Resolved]
  - Type 2 diabetes mellitus [Recovering/Resolving]
